FAERS Safety Report 4638772-3 (Version None)
Quarter: 2005Q2

REPORT INFORMATION
  Report Type: 
  Country: None (occurrence: None)
  Receive Date: 20050419
  Receipt Date: 20050406
  Transmission Date: 20051028
  Serious: Yes (Other)
  Sender: FDA-Public Use
  Company Number: US-BRISTOL-MYERS SQUIBB COMPANY-12926390

PATIENT

DRUGS (1)
  1. REYATAZ [Suspect]

REACTIONS (1)
  - PANCREATITIS [None]
